FAERS Safety Report 5544496-0 (Version None)
Quarter: 2007Q4

REPORT INFORMATION
  Report Type: 
  Country: None (occurrence: None)
  Receive Date: 20071210
  Receipt Date: 20061207
  Transmission Date: 20080405
  Serious: No
  Sender: FDA-Public Use
  Company Number: US-AMGEN-KDL202726

PATIENT
  Sex: Female

DRUGS (7)
  1. ENBREL [Suspect]
     Indication: PSORIASIS
     Dates: start: 20040201, end: 20051001
  2. ENBREL [Suspect]
     Indication: PSORIATIC ARTHROPATHY
  3. HUMIRA [Concomitant]
     Dates: start: 20051001
  4. DIFLUCAN [Concomitant]
  5. PRENATAL VITAMINS [Concomitant]
     Dates: start: 20060601
  6. OLUX [Concomitant]
  7. ZOVIRAX [Concomitant]

REACTIONS (4)
  - HYPOAESTHESIA [None]
  - MUSCULAR WEAKNESS [None]
  - PARAESTHESIA [None]
  - STOMACH DISCOMFORT [None]
